FAERS Safety Report 20707020 (Version 1)
Quarter: 2022Q2

REPORT INFORMATION
  Report Type: Spontaneous
  Country: US (occurrence: US)
  Receive Date: 20220413
  Receipt Date: 20220413
  Transmission Date: 20220720
  Serious: No
  Sender: FDA-Public Use
  Company Number: US-PFIZER INC-202101016267

PATIENT
  Age: 61 Year
  Sex: Female
  Weight: 93.89 kg

DRUGS (2)
  1. CHANTIX [Suspect]
     Active Substance: VARENICLINE TARTRATE
     Indication: Smoking cessation therapy
     Dosage: 0.5 MG
     Dates: start: 201906
  2. CHANTIX [Suspect]
     Active Substance: VARENICLINE TARTRATE
     Dosage: 1 UNK

REACTIONS (3)
  - Recalled product administered [Unknown]
  - Insomnia [Unknown]
  - Appetite disorder [Unknown]
